FAERS Safety Report 7562687-4 (Version None)
Quarter: 2011Q2

REPORT INFORMATION
  Report Type: 
  Country: None (occurrence: None)
  Receive Date: 20110622
  Receipt Date: 20110617
  Transmission Date: 20111010
  Serious: Yes (Hospitalization, Other)
  Sender: FDA-Public Use
  Company Number: US-PFIZER INC-2010006457

PATIENT
  Sex: Female

DRUGS (1)
  1. CHANTIX [Suspect]
     Indication: SMOKING CESSATION THERAPY
     Dosage: UNK
     Dates: start: 20080216, end: 20080327

REACTIONS (7)
  - SUICIDE ATTEMPT [None]
  - SLEEP APNOEA SYNDROME [None]
  - OVERWEIGHT [None]
  - PAIN [None]
  - INTENTIONAL OVERDOSE [None]
  - DEPRESSION [None]
  - NIGHTMARE [None]
